FAERS Safety Report 5081553-X (Version None)
Quarter: 2006Q3

REPORT INFORMATION
  Report Type: 
  Country: None (occurrence: None)
  Receive Date: 20060811
  Receipt Date: 20060804
  Transmission Date: 20061208
  Serious: Yes (Death)
  Sender: FDA-Public Use
  Company Number: 2005US001469

PATIENT
  Age: 8 Year
  Sex: Male

DRUGS (1)
  1. PROTOPIC [Suspect]
     Indication: ECZEMA
     Dosage: PRN, TOPICAL
     Route: 061
     Dates: start: 20030101

REACTIONS (14)
  - BACTERAEMIA [None]
  - CHEST X-RAY ABNORMAL [None]
  - DISEASE PROGRESSION [None]
  - HAEMOPTYSIS [None]
  - JAUNDICE [None]
  - NEUTROPENIA [None]
  - NON-HODGKIN'S LYMPHOMA [None]
  - OCULAR ICTERUS [None]
  - RESPIRATORY DISTRESS [None]
  - STEM CELL TRANSPLANT [None]
  - STREPTOCOCCAL SEPSIS [None]
  - TACHYCARDIA [None]
  - TACHYPNOEA [None]
  - TUMOUR ASSOCIATED FEVER [None]
